FAERS Safety Report 6919852-6 (Version None)
Quarter: 2010Q3

REPORT INFORMATION
  Report Type: 
  Country: None (occurrence: None)
  Receive Date: 20100810
  Receipt Date: 20100810
  Transmission Date: 20110219
  Serious: Yes (Life-Threatening, Hospitalization)
  Sender: FDA-Public Use
  Company Number: None

PATIENT
  Age: 35 Year
  Sex: Female
  Weight: 74.8435 kg

DRUGS (6)
  1. DIVALPROEX SODIUM EXTENDED RELEASE [Suspect]
     Indication: BIPOLAR DISORDER
     Dosage: 500 MG TID PO
     Route: 048
     Dates: start: 20100723, end: 20100808
  2. AMPHETAMINE AND DEXTROAMPHETAMINE SALTS [Concomitant]
  3. ALPRAZOLAM [Concomitant]
  4. HYDROCODONE BITARTRATE [Concomitant]
  5. APAP TAB [Concomitant]
  6. FENTANYL-75 [Concomitant]

REACTIONS (6)
  - ABNORMAL BEHAVIOUR [None]
  - DECREASED INTEREST [None]
  - DISORIENTATION [None]
  - LISTLESS [None]
  - OPHTHALMOLOGICAL EXAMINATION ABNORMAL [None]
  - SUICIDAL IDEATION [None]
